FAERS Safety Report 13985741 (Version 1)
Quarter: 2017Q3

REPORT INFORMATION
  Report Type: Spontaneous
  Country: US (occurrence: None)
  Receive Date: 20170919
  Receipt Date: 20170919
  Transmission Date: 20171128
  Serious: Yes (Death)
  Sender: FDA-Public Use
  Company Number: None

PATIENT
  Age: 56 Year
  Sex: Male

DRUGS (8)
  1. ESBRIET [Suspect]
     Active Substance: PIRFENIDONE
     Indication: IDIOPATHIC PULMONARY FIBROSIS
     Route: 048
     Dates: start: 20170626, end: 20170914
  2. FORTEO [Suspect]
     Active Substance: TERIPARATIDE
     Indication: IDIOPATHIC PULMONARY FIBROSIS
     Route: 058
     Dates: start: 20170725, end: 20170914
  3. PREDNISONE. [Concomitant]
     Active Substance: PREDNISONE
  4. FLUTICASONE. [Concomitant]
     Active Substance: FLUTICASONE
  5. VITAMIN D [Concomitant]
     Active Substance: CHOLECALCIFEROL
  6. SMZ-TMP [Concomitant]
     Active Substance: SULFAMETHOXAZOLE\TRIMETHOPRIM
  7. ATORVASTATIN [Concomitant]
     Active Substance: ATORVASTATIN
  8. CYCLOBENZAPRINE. [Concomitant]
     Active Substance: CYCLOBENZAPRINE

REACTIONS (1)
  - Death [None]

NARRATIVE: CASE EVENT DATE: 20170914
